FAERS Safety Report 7467881-9 (Version None)
Quarter: 2011Q2

REPORT INFORMATION
  Report Type: 
  Country: None (occurrence: None)
  Receive Date: 20110509
  Receipt Date: 20110207
  Transmission Date: 20111010
  Serious: No
  Sender: FDA-Public Use
  Company Number: US-ALEXION-A201100152

PATIENT
  Sex: Female

DRUGS (2)
  1. SOLIRIS [Suspect]
     Indication: PAROXYSMAL NOCTURNAL HAEMOGLOBINURIA
     Dosage: 900 MG, UNK
     Route: 042
     Dates: start: 20090101
  2. MULTI-VITAMIN [Concomitant]
     Dosage: UNK

REACTIONS (3)
  - THERMAL BURN [None]
  - STOMATITIS [None]
  - PURULENT DISCHARGE [None]
